FAERS Safety Report 6140416-9 (Version None)
Quarter: 2009Q1

REPORT INFORMATION
  Report Type: 
  Country: None (occurrence: None)
  Receive Date: 20090331
  Receipt Date: 20090320
  Transmission Date: 20090719
  Serious: Yes (Life-Threatening, Hospitalization)
  Sender: FDA-Public Use
  Company Number: 238380J08USA

PATIENT
  Age: 52 Year
  Sex: Female

DRUGS (11)
  1. REBIF [Suspect]
     Indication: MULTIPLE SCLEROSIS
     Dosage: SEE IMAGE, SUBCUTANEOUS
     Route: 058
     Dates: start: 20061206, end: 20080101
  2. METFORMIN HCL [Concomitant]
  3. AVANDIA [Concomitant]
  4. ZOCOR (ALL OTHER THERAPEUTIC PRODUCTS) [Concomitant]
  5. SOMA [Concomitant]
  6. PERCOCET [Concomitant]
  7. UNSPECIFIED ANTI-HYPERTENSIVE (ANTIHYPERTENSIVES) [Concomitant]
  8. DOXEPIN HCL [Concomitant]
  9. CARAFATE [Concomitant]
  10. PROTONIX [Concomitant]
  11. PLAVIX [Concomitant]

REACTIONS (12)
  - BLOOD POTASSIUM INCREASED [None]
  - CARDIAC FAILURE CONGESTIVE [None]
  - CONDITION AGGRAVATED [None]
  - DYSPNOEA [None]
  - FATIGUE [None]
  - HAEMOGLOBIN DECREASED [None]
  - HYPERCAPNIA [None]
  - LOSS OF CONSCIOUSNESS [None]
  - MUSCLE SPASMS [None]
  - PALLOR [None]
  - RENAL FAILURE [None]
  - RESPIRATORY FAILURE [None]
